FAERS Safety Report 9516559 (Version 1)
Quarter: 2013Q1

REPORT INFORMATION
  Report Type: Spontaneous
  Country: US (occurrence: None)
  Receive Date: 20130305
  Receipt Date: 20130305
  Transmission Date: 20140127
  Serious: Yes (Hospitalization, Other)
  Sender: FDA-Public Use
  Company Number: 163-21880-12011339

PATIENT
  Age: 81 Year
  Sex: Female

DRUGS (8)
  1. REVLIMID (LENALIDOMIDE) (25 MILLIGRAM, CAPSULES) [Suspect]
     Indication: PLASMA CELL MYELOMA
     Dosage: 25 MG, DAILY X 21 DAYS, PO
     Route: 048
     Dates: start: 200811, end: 2009
  2. INDOCIN (INDOMETACIN) [Concomitant]
  3. CALTRATE (CALCIUM CARBONATE) [Concomitant]
  4. ASA (ACETYLSALICYLIC ACID) [Concomitant]
  5. KCL (POTASSIUM CHLORIDE) [Concomitant]
  6. CODEINE SULFATE (CODEINE SULFATE) [Concomitant]
  7. ACYCLOVIR (ACICLOVIR) [Concomitant]
  8. LISINOPRIL (LISINOPRIL) [Concomitant]

REACTIONS (5)
  - Asthenia [None]
  - Anaemia [None]
  - Sepsis [None]
  - Pyrexia [None]
  - Osteomyelitis [None]
